FAERS Safety Report 13172954 (Version 1)
Quarter: 2017Q1

REPORT INFORMATION
  Report Type: Spontaneous
  Country: US (occurrence: US)
  Receive Date: 20170201
  Receipt Date: 20170201
  Transmission Date: 20170428
  Serious: No
  Sender: FDA-Public Use
  Company Number: US-ABBVIE-16P-163-1559952-00

PATIENT
  Age: 0 Year
  Sex: Male
  Weight: 4.09 kg

DRUGS (1)
  1. HUMIRA [Suspect]
     Active Substance: ADALIMUMAB
     Indication: MATERNAL EXPOSURE TIMING UNSPECIFIED
     Route: 064

REACTIONS (6)
  - Grunting [Recovering/Resolving]
  - Foetal heart rate decreased [Recovered/Resolved]
  - Exposure during breast feeding [Not Recovered/Not Resolved]
  - Jaundice [Recovered/Resolved]
  - Normal newborn [Unknown]
  - Foetal exposure during pregnancy [Recovered/Resolved]

NARRATIVE: CASE EVENT DATE: 201512
